FAERS Safety Report 18843904 (Version 1)
Quarter: 2021Q1

REPORT INFORMATION
  Report Type: Report from Study
  Country: IT (occurrence: IT)
  Receive Date: 20210203
  Receipt Date: 20210203
  Transmission Date: 20210419
  Serious: No
  Sender: FDA-Public Use
  Company Number: IT-EXELIXIS-CABO-20027640

PATIENT
  Sex: Female

DRUGS (1)
  1. CABOMETYX [Suspect]
     Active Substance: CABOZANTINIB S-MALATE
     Indication: RENAL CELL CARCINOMA
     Dosage: UNK
     Route: 048

REACTIONS (11)
  - Decreased appetite [Unknown]
  - Diarrhoea [Unknown]
  - Weight decreased [Unknown]
  - Oropharyngeal pain [Unknown]
  - Blood pressure increased [Unknown]
  - Stomatitis [Unknown]
  - Fatigue [Unknown]
  - Odynophagia [Unknown]
  - Nausea [Unknown]
  - Dysphonia [Unknown]
  - Constipation [Unknown]
